FAERS Safety Report 7347399-4 (Version None)
Quarter: 2011Q1

REPORT INFORMATION
  Report Type: 
  Country: None (occurrence: None)
  Receive Date: 20110303
  Receipt Date: 20110222
  Transmission Date: 20110831
  Serious: Yes (Death)
  Sender: FDA-Public Use
  Company Number: UTC-005342

PATIENT
  Age: 23 Year
  Sex: Male
  Weight: 132 kg

DRUGS (5)
  1. ADCIRCA [Concomitant]
  2. LETAIRIS (AMBRISENTAN) [Concomitant]
  3. DIURETICS (DIURETICS) [Concomitant]
  4. REMODULIN [Suspect]
     Indication: PULMONARY HYPERTENSION
     Dosage: 69.12 UG/KG (0.048 UG/KG,1 IN 1 MIN),INTRAVENOUS
     Route: 042
     Dates: start: 20100810
  5. COUMADIN [Concomitant]

REACTIONS (1)
  - DEATH [None]
